FAERS Safety Report 5525445-8 (Version None)
Quarter: 2007Q4

REPORT INFORMATION
  Report Type: 
  Country: None (occurrence: None)
  Receive Date: 20071126
  Receipt Date: 20071126
  Transmission Date: 20080405
  Serious: Yes (Other)
  Sender: FDA-Public Use
  Company Number: B0496886A

PATIENT
  Age: 2 Year
  Sex: Male
  Weight: 10.5 kg

DRUGS (1)
  1. ACETAMINOPHEN [Suspect]
     Dosage: 5ML PER DAY
     Route: 048
     Dates: start: 20071118, end: 20071118

REACTIONS (2)
  - PHARMACEUTICAL PRODUCT COMPLAINT [None]
  - THERAPEUTIC PRODUCT CONTAMINATION [None]
